FAERS Safety Report 13086337 (Version 2)
Quarter: 2017Q1

REPORT INFORMATION
  Report Type: Spontaneous
  Country: IN (occurrence: IN)
  Receive Date: 20170104
  Receipt Date: 20170224
  Transmission Date: 20170428
  Serious: Yes (Hospitalization)
  Sender: FDA-Public Use
  Company Number: PHHY2016IN178164

PATIENT
  Age: 76 Year
  Sex: Female

DRUGS (1)
  1. METFORMIN [Suspect]
     Active Substance: METFORMIN HYDROCHLORIDE
     Indication: DIABETES MELLITUS
     Route: 048

REACTIONS (9)
  - Hyperhidrosis [Recovered/Resolved]
  - Hyporesponsive to stimuli [Recovered/Resolved]
  - Loss of consciousness [Recovered/Resolved]
  - Hypoglycaemia [Recovered/Resolved]
  - Myocardial infarction [Recovered/Resolved]
  - Chest pain [Recovered/Resolved]
  - Electrocardiogram ST segment depression [Recovered/Resolved]
  - Chills [Recovered/Resolved]
  - Left ventricular dysfunction [Recovered/Resolved]
